FAERS Safety Report 9770947 (Version 1)
Quarter: 2013Q4

REPORT INFORMATION
  Report Type: Spontaneous
  Country: FR (occurrence: FR)
  Receive Date: 20131218
  Receipt Date: 20131218
  Transmission Date: 20140711
  Serious: Yes (Death, Hospitalization)
  Sender: FDA-Public Use
  Company Number: FR-PFIZER INC-2013354676

PATIENT
  Age: 80 Year
  Sex: Female

DRUGS (5)
  1. TAHOR [Suspect]
     Dosage: UNK
     Route: 048
     Dates: start: 20131112
  2. INEXIUM [Suspect]
     Dosage: UNK
     Route: 048
     Dates: start: 20131031
  3. LASILIX [Suspect]
     Dosage: UNK
     Route: 048
     Dates: start: 20131102
  4. KARDEGIC [Concomitant]
     Dosage: UNK
     Dates: start: 20131031
  5. PLAVIX [Concomitant]
     Dosage: UNK
     Dates: start: 20131031

REACTIONS (2)
  - Death [Fatal]
  - Acute generalised exanthematous pustulosis [Unknown]
